FAERS Safety Report 24916518 (Version 1)
Quarter: 2025Q1

REPORT INFORMATION
  Report Type: Spontaneous
  Country: US (occurrence: US)
  Receive Date: 20250203
  Receipt Date: 20250203
  Transmission Date: 20250408
  Serious: Yes (Other)
  Sender: AIPING PHARMACEUTICAL
  Company Number: US-AIPING-2025AILIT00008

PATIENT
  Age: 54 Year
  Sex: Male

DRUGS (4)
  1. PREDNISONE [Suspect]
     Active Substance: PREDNISONE
     Indication: Crohn^s disease
     Dosage: FOR OVER A YEAR
     Route: 065
  2. ADALIMUMAB [Suspect]
     Active Substance: ADALIMUMAB
     Indication: Crohn^s disease
     Route: 065
  3. ERTAPENEM [Concomitant]
     Active Substance: ERTAPENEM
     Route: 065
  4. DAPTOMYCIN [Concomitant]
     Active Substance: DAPTOMYCIN
     Route: 065

REACTIONS (1)
  - Plasmablastic lymphoma [Unknown]
